FAERS Safety Report 6982649-5 (Version None)
Quarter: 2010Q3

REPORT INFORMATION
  Report Type: 
  Country: None (occurrence: None)
  Receive Date: 20100914
  Receipt Date: 20100312
  Transmission Date: 20110219
  Serious: Yes (Other)
  Sender: FDA-Public Use
  Company Number: US-PFIZER INC-2010012979

PATIENT
  Age: 69 Year
  Sex: Male
  Weight: 95.254 kg

DRUGS (19)
  1. LYRICA [Suspect]
     Indication: BACK PAIN
     Dosage: 75 MG, 1X/DAY
     Route: 048
     Dates: start: 20100119
  2. PLAVIX [Concomitant]
     Indication: CARDIAC DISORDER
     Dosage: 75 MG, 1X/DAY
     Route: 048
     Dates: start: 20000101
  3. ADVAIR DISKUS 100/50 [Concomitant]
     Indication: LUNG DISORDER
     Dosage: UNK
  4. ALLOPURINOL [Concomitant]
     Dosage: UNK
  5. AVAPRO [Concomitant]
     Dosage: UNK
  6. ATENOLOL [Concomitant]
     Dosage: UNK
  7. VITAMIN B COMPLEX CAP [Concomitant]
  8. CALCIUM WITH VITAMIN D [Concomitant]
     Dosage: UNK
  9. CARAFATE [Concomitant]
     Dosage: UNK
  10. FOLTRIN [Concomitant]
     Dosage: UNK
  11. FUROSEMIDE [Concomitant]
     Dosage: UNK
  12. FLUOXETINE [Concomitant]
  13. ISOSORBIDE [Concomitant]
  14. LIPITOR [Concomitant]
  15. LOVAZA [Concomitant]
  16. NIASPAN [Concomitant]
     Dosage: UNK
  17. NEXIUM [Concomitant]
     Dosage: UNK
  18. VITAMIN D [Concomitant]
     Dosage: UNK
  19. VITAMIN E [Concomitant]
     Dosage: UNK

REACTIONS (5)
  - BALANCE DISORDER [None]
  - DIPLOPIA [None]
  - FATIGUE [None]
  - TREMOR [None]
  - VISION BLURRED [None]
